FAERS Safety Report 4577658-X (Version None)
Quarter: 2005Q1

REPORT INFORMATION
  Report Type: 
  Country: None (occurrence: None)
  Receive Date: 20050210
  Receipt Date: 20041112
  Transmission Date: 20050727
  Serious: Yes (Hospitalization)
  Sender: FDA-Public Use
  Company Number: US-MERCK-0411USA02296

PATIENT
  Age: 68 Year
  Sex: Male

DRUGS (2)
  1. VIOXX [Suspect]
     Indication: ARTHRITIS
     Route: 048
     Dates: start: 19990101, end: 20041119
  2. MOTRIN [Concomitant]
     Indication: PAIN IN EXTREMITY
     Route: 048

REACTIONS (4)
  - CARDIAC FLUTTER [None]
  - CHEST PAIN [None]
  - DRUG INEFFECTIVE [None]
  - PALPITATIONS [None]
